FAERS Safety Report 7191267-8 (Version None)
Quarter: 2010Q4

REPORT INFORMATION
  Report Type: 
  Country: None (occurrence: None)
  Receive Date: 20101221
  Receipt Date: 20101221
  Transmission Date: 20110411
  Serious: Yes (Other)
  Sender: FDA-Public Use
  Company Number: None

PATIENT
  Sex: Male
  Weight: 72.5755 kg

DRUGS (1)
  1. DARVOCET [Suspect]
     Indication: ARTHRALGIA
     Dosage: 4X/DAY

REACTIONS (1)
  - HEART RATE IRREGULAR [None]
